FAERS Safety Report 8363260-0 (Version None)
Quarter: 2012Q2

REPORT INFORMATION
  Report Type: 
  Country: None (occurrence: None)
  Receive Date: 20120516
  Receipt Date: 20111212
  Transmission Date: 20120825
  Serious: Yes (Hospitalization)
  Sender: FDA-Public Use
  Company Number: US-ALEXION-A201101873

PATIENT
  Sex: Female

DRUGS (7)
  1. LIPITOR [Concomitant]
     Dosage: UNK
  2. ARIMIDEX [Concomitant]
     Indication: NEOPLASM MALIGNANT
     Dosage: 1 MG, QD
  3. SOLIRIS [Suspect]
     Indication: PAROXYSMAL NOCTURNAL HAEMOGLOBINURIA
     Dosage: 600 MG, QW
     Route: 042
     Dates: start: 20090310
  4. MULTI-VITAMINS [Concomitant]
     Dosage: UNK
  5. SOLIRIS [Suspect]
     Dosage: 900 MG, Q2W
     Route: 042
     Dates: start: 20090407
  6. TRANXENE [Concomitant]
     Indication: ANXIETY
     Dosage: 7.5 MG, TID
  7. FOLIC ACID [Concomitant]
     Indication: ANAEMIA
     Dosage: 1 MG, QD

REACTIONS (2)
  - CELLULITIS [None]
  - FATIGUE [None]
